FAERS Safety Report 9092876 (Version 1)
Quarter: 2013Q1

REPORT INFORMATION
  Report Type: Report from Study
  Country: US (occurrence: US)
  Receive Date: 20130131
  Receipt Date: 20130131
  Transmission Date: 20140127
  Serious: No
  Sender: FDA-Public Use
  Company Number: US-ABBOTT-12P-163-0995282-00

PATIENT
  Age: 72 Year
  Sex: Female

DRUGS (4)
  1. HUMIRA [Suspect]
     Indication: CROHN^S DISEASE
     Dates: start: 20120928, end: 20120928
  2. HUMIRA [Suspect]
     Dates: start: 20121012, end: 20121012
  3. ALDACTONE [Concomitant]
     Indication: BLOOD PRESSURE
     Dosage: 1/2 TABLET DAILY
  4. XANAX [Concomitant]
     Indication: ANXIETY

REACTIONS (3)
  - Injection site swelling [Recovering/Resolving]
  - Injection site erythema [Recovering/Resolving]
  - Injection site pruritus [Recovering/Resolving]
